FAERS Safety Report 17621019 (Version 1)
Quarter: 2020Q2

REPORT INFORMATION
  Report Type: Spontaneous
  Country: CA (occurrence: CA)
  Receive Date: 20200403
  Receipt Date: 20200403
  Transmission Date: 20200713
  Serious: Yes (Life-Threatening)
  Sender: FDA-Public Use
  Company Number: CA-TEVA-2020-CA-1216870

PATIENT
  Age: 73 Year
  Sex: Male

DRUGS (6)
  1. MONTELUKAST [Concomitant]
     Active Substance: MONTELUKAST SODIUM
  2. AVODART [Concomitant]
     Active Substance: DUTASTERIDE
  3. DEXILANT [Concomitant]
     Active Substance: DEXLANSOPRAZOLE
  4. ATORVASTATIN CALCIUM. [Suspect]
     Active Substance: ATORVASTATIN CALCIUM
     Indication: PRODUCT USED FOR UNKNOWN INDICATION
     Route: 048
  5. CODEINE [Concomitant]
     Active Substance: CODEINE
  6. LOSARTAN. [Concomitant]
     Active Substance: LOSARTAN

REACTIONS (4)
  - Hypoaesthesia [Unknown]
  - Abdominal pain upper [Unknown]
  - Myalgia [Unknown]
  - Chromaturia [Unknown]
